FAERS Safety Report 5887686-X (Version None)
Quarter: 2008Q3

REPORT INFORMATION
  Report Type: 
  Country: None (occurrence: None)
  Receive Date: 20080916
  Receipt Date: 20080905
  Transmission Date: 20090109
  Serious: Yes (Other)
  Sender: FDA-Public Use
  Company Number: 52060

PATIENT
  Sex: Female

DRUGS (8)
  1. DICYCLOMINE HCL [Suspect]
     Indication: ABDOMINAL PAIN
     Dosage: 20MG IV
     Route: 042
     Dates: start: 20080825
  2. XANAX [Concomitant]
  3. ZYRTEC [Concomitant]
  4. LEXAPRO [Concomitant]
  5. FENTANYL [Concomitant]
  6. HYDROMORPHONE HCL [Concomitant]
  7. IBUPROFREN [Concomitant]
  8. XELODA [Concomitant]

REACTIONS (2)
  - INCORRECT ROUTE OF DRUG ADMINISTRATION [None]
  - MEDICATION ERROR [None]
